FAERS Safety Report 13941628 (Version 1)
Quarter: 2017Q3

REPORT INFORMATION
  Report Type: Spontaneous
  Country: RU (occurrence: RU)
  Receive Date: 20170906
  Receipt Date: 20170906
  Transmission Date: 20171127
  Serious: Yes (Death)
  Sender: FDA-Public Use
  Company Number: RU-BAYER-2016-063952

PATIENT
  Age: 30 Year
  Sex: Male

DRUGS (2)
  1. ULTRAVIST [Suspect]
     Active Substance: IOPROMIDE
     Indication: ARTERIOGRAM CORONARY
  2. ULTRAVIST [Suspect]
     Active Substance: IOPROMIDE
     Indication: ACUTE MYOCARDIAL INFARCTION
     Dosage: 150 ML, QD
     Route: 042
     Dates: start: 20150708, end: 20150708

REACTIONS (13)
  - Cardiogenic shock [Fatal]
  - Seizure [Fatal]
  - General physical health deterioration [Fatal]
  - Bradycardia [Fatal]
  - Ventricular extrasystoles [Fatal]
  - Ventricular fibrillation [Fatal]
  - Blood pressure decreased [Fatal]
  - Cardiac arrest [Fatal]
  - Myocardial infarction [Fatal]
  - Coronary artery occlusion [Fatal]
  - Cardiovascular insufficiency [Fatal]
  - Angina pectoris [Fatal]
  - Ventricular tachycardia [Fatal]

NARRATIVE: CASE EVENT DATE: 20150708
